FAERS Safety Report 7596526-2 (Version None)
Quarter: 2011Q3

REPORT INFORMATION
  Report Type: 
  Country: None (occurrence: None)
  Receive Date: 20110708
  Receipt Date: 20110628
  Transmission Date: 20111222
  Serious: No
  Sender: FDA-Public Use
  Company Number: US-BIOGENIDEC-2011BI023700

PATIENT
  Sex: Female

DRUGS (2)
  1. AVONEX [Suspect]
     Indication: MULTIPLE SCLEROSIS
     Route: 030
     Dates: end: 20030101
  2. AVONEX [Suspect]
     Route: 030
     Dates: start: 20030101

REACTIONS (6)
  - CHILLS [None]
  - POOR QUALITY SLEEP [None]
  - INJECTION SITE PAIN [None]
  - STRESS AT WORK [None]
  - MIGRAINE [None]
  - CENTRAL NERVOUS SYSTEM LESION [None]
